FAERS Safety Report 6085114-5 (Version None)
Quarter: 2009Q1

REPORT INFORMATION
  Report Type: 
  Country: None (occurrence: None)
  Receive Date: 20090217
  Receipt Date: 20090202
  Transmission Date: 20090719
  Serious: Yes (Death)
  Sender: FDA-Public Use
  Company Number: CHPA2009US01885

PATIENT
  Age: 24 Year
  Sex: Male

DRUGS (1)
  1. ASPIRIN [Suspect]
     Dosage: ORAL
     Route: 048

REACTIONS (29)
  - AGITATION [None]
  - ARTERIOSCLEROSIS CORONARY ARTERY [None]
  - BELLIGERENCE [None]
  - BLOOD BICARBONATE DECREASED [None]
  - BLOOD CHLORIDE INCREASED [None]
  - BLOOD CREATINE INCREASED [None]
  - BLOOD GLUCOSE INCREASED [None]
  - BLOOD PH DECREASED [None]
  - BLOOD PH INCREASED [None]
  - BLOOD POTASSIUM INCREASED [None]
  - BLOOD UREA INCREASED [None]
  - BRADYCARDIA [None]
  - BREATH SOUNDS ABNORMAL [None]
  - CARDIAC ARREST [None]
  - COMPLETED SUICIDE [None]
  - CYANOSIS [None]
  - DISORIENTATION [None]
  - HEPATOSPLENOMEGALY [None]
  - HYPERHIDROSIS [None]
  - LEFT VENTRICULAR HYPERTROPHY [None]
  - OVERDOSE [None]
  - PCO2 DECREASED [None]
  - PO2 INCREASED [None]
  - PULMONARY CONGESTION [None]
  - PULMONARY OEDEMA [None]
  - SOMNOLENCE [None]
  - TACHYPNOEA [None]
  - THERAPEUTIC AGENT TOXICITY [None]
  - VENTRICULAR TACHYCARDIA [None]
